FAERS Safety Report 7731605-8 (Version None)
Quarter: 2011Q3

REPORT INFORMATION
  Report Type: 
  Country: None (occurrence: None)
  Receive Date: 20110906
  Receipt Date: 20110616
  Transmission Date: 20111222
  Serious: No
  Sender: FDA-Public Use
  Company Number: US-AMGEN-USASP2011024995

PATIENT
  Age: 52 Year
  Sex: Female
  Weight: 84.354 kg

DRUGS (3)
  1. PROLIA [Suspect]
     Indication: OSTEOPOROSIS POSTMENOPAUSAL
     Dosage: 60 MG, Q6MO
     Dates: start: 20110325
  2. OMEPRAZOLE [Concomitant]
  3. VITAMINS                           /00067501/ [Concomitant]

REACTIONS (10)
  - SOMNOLENCE [None]
  - PAIN [None]
  - BACK PAIN [None]
  - BONE PAIN [None]
  - MUSCULAR WEAKNESS [None]
  - ARTHRALGIA [None]
  - MALAISE [None]
  - FATIGUE [None]
  - MYALGIA [None]
  - GINGIVAL BLEEDING [None]
